FAERS Safety Report 9831062 (Version 1)
Quarter: 2014Q1

REPORT INFORMATION
  Report Type: Spontaneous
  Country: US (occurrence: US)
  Receive Date: 20140120
  Receipt Date: 20140120
  Transmission Date: 20141002
  Serious: Yes (Hospitalization)
  Sender: FDA-Public Use
  Company Number: US-BRISTOL-MYERS SQUIBB COMPANY-20039798

PATIENT
  Age: 51 Year
  Sex: Female

DRUGS (3)
  1. BYETTA [Suspect]
     Indication: TYPE 2 DIABETES MELLITUS
  2. JANUVIA [Suspect]
     Indication: TYPE 2 DIABETES MELLITUS
  3. VICTOZA [Suspect]
     Indication: TYPE 2 DIABETES MELLITUS
     Dates: start: 20130825

REACTIONS (2)
  - Intestinal ischaemia [Recovering/Resolving]
  - Large intestine polyp [Recovered/Resolved]
